FAERS Safety Report 4273081-6 (Version None)
Quarter: 2004Q1

REPORT INFORMATION
  Report Type: 
  Country: None (occurrence: None)
  Receive Date: 20040116
  Receipt Date: 20011023
  Transmission Date: 20041129
  Serious: Yes (Hospitalization)
  Sender: FDA-Public Use
  Company Number: US-BRISTOL-MYERS SQUIBB COMPANY-11040409

PATIENT
  Age: 81 Year
  Sex: Female

DRUGS (10)
  1. GATIFLOXACIN [Suspect]
     Dosage: MOST RECENT DOSE PRIOR TO THE EVENT WAS ON 18-OCT-2001.
     Route: 048
     Dates: start: 20010626
  2. PRAVASTATIN SODIUM [Suspect]
     Dosage: MOST RECENT DOSE PRIOR TO THE EVENT WAS ON 18-OCT-2001.
     Route: 048
     Dates: start: 20010608
  3. DIGOXIN [Concomitant]
     Route: 048
     Dates: start: 20010920
  4. SYNTHROID [Concomitant]
     Route: 048
     Dates: start: 19880101
  5. ASPIRIN [Concomitant]
     Route: 048
     Dates: start: 20010604
  6. LASIX [Concomitant]
     Route: 048
     Dates: start: 19980101
  7. COREG [Concomitant]
     Route: 048
     Dates: start: 20010920
  8. AMARYL [Concomitant]
     Route: 048
     Dates: start: 20000401
  9. GLUCOPHAGE [Concomitant]
     Route: 048
     Dates: start: 20011013
  10. POTASSIUM CHLORIDE [Concomitant]

REACTIONS (1)
  - HYPERGLYCAEMIC HYPEROSMOLAR NONKETOTIC SYNDROME [None]
